FAERS Safety Report 9220857 (Version 2)
Quarter: 2013Q2

REPORT INFORMATION
  Report Type: Spontaneous
  Country: US (occurrence: US)
  Receive Date: 20130409
  Receipt Date: 20130415
  Transmission Date: 20140414
  Serious: Yes (Other)
  Sender: FDA-Public Use
  Company Number: US-BAYER-2013-044776

PATIENT
  Age: 27 Year
  Sex: Female

DRUGS (13)
  1. YAZ [Suspect]
     Dosage: UNK
     Dates: start: 2006, end: 2009
  2. YASMIN [Suspect]
     Dosage: UNK
     Dates: start: 2006, end: 2009
  3. OCELLA [Suspect]
     Dosage: UNK
     Dates: start: 2006, end: 2009
  4. VITAMIN D [Concomitant]
  5. IMITREX [Concomitant]
  6. FLONASE [Concomitant]
  7. SUDAFED [Concomitant]
  8. IBUPROFEN [Concomitant]
  9. NORCO [Concomitant]
  10. FRAGMIN [Concomitant]
  11. LASIX [Concomitant]
  12. ALLOPURINOL [Concomitant]
  13. CELEXA [Concomitant]

REACTIONS (9)
  - Deep vein thrombosis [None]
  - Thrombosis [None]
  - Abdominal pain [None]
  - Injury [None]
  - Pain [None]
  - Emotional distress [None]
  - General physical health deterioration [None]
  - Anxiety [None]
  - Pain [None]
